FAERS Safety Report 14998105 (Version 1)
Quarter: 2018Q2

REPORT INFORMATION
  Report Type: Spontaneous
  Country: DE (occurrence: DE)
  Receive Date: 20180611
  Receipt Date: 20180611
  Transmission Date: 20180711
  Serious: Yes (Other)
  Sender: FDA-Public Use
  Company Number: DE-ARBOR PHARMACEUTICALS, LLC-DE-2018ARB000648

PATIENT
  Sex: Male

DRUGS (1)
  1. TRIPTODUR [Suspect]
     Active Substance: TRIPTORELIN
     Indication: PROSTATE CANCER
     Dosage: UNK

REACTIONS (3)
  - Paraesthesia [Unknown]
  - Muscle spasms [Unknown]
  - Atrial fibrillation [Unknown]
